FAERS Safety Report 14761629 (Version 1)
Quarter: 2018Q2

REPORT INFORMATION
  Report Type: Spontaneous
  Country: US (occurrence: US)
  Receive Date: 20180416
  Receipt Date: 20180416
  Transmission Date: 20180711
  Serious: No
  Sender: FDA-Public Use
  Company Number: US-BION-006186

PATIENT
  Sex: Female

DRUGS (1)
  1. ALEVE [Suspect]
     Active Substance: NAPROXEN SODIUM
     Indication: PRODUCT USED FOR UNKNOWN INDICATION
     Dosage: TOOK ONE PILL ON 3-APR-2017 AT 9:00 P.M., TOOK ANOTHER PILL ON 4-APR-2017 IN THE MORNING
     Route: 048
     Dates: start: 20170403

REACTIONS (1)
  - Dizziness [Not Recovered/Not Resolved]
